FAERS Safety Report 13818572 (Version 1)
Quarter: 2017Q3

REPORT INFORMATION
  Report Type: Spontaneous
  Country: KR (occurrence: KR)
  Receive Date: 20170731
  Receipt Date: 20170731
  Transmission Date: 20171127
  Serious: Yes (Disabling)
  Sender: FDA-Public Use
  Company Number: KR-BAUSCH-BL-2017-022568

PATIENT
  Age: 21 Year
  Sex: Male

DRUGS (4)
  1. TRIENTINE [Suspect]
     Active Substance: TRIENTINE
     Indication: HEPATO-LENTICULAR DEGENERATION
     Route: 065
  2. TRIENTINE [Suspect]
     Active Substance: TRIENTINE
     Dosage: ONE MONTH AFTER NEUROLOGICAL DETERIORATION, HE STARTED TAKING TRIENTINE AGAIN
     Route: 065
  3. TRIENTINE [Suspect]
     Active Substance: TRIENTINE
     Dosage: 1000 MG IN A PERIOD OF 1 YEAR
     Route: 065
  4. TRIENTINE [Suspect]
     Active Substance: TRIENTINE
     Dosage: OVER THE FOLLOWING 3 MONTHS
     Route: 065

REACTIONS (1)
  - Neurological decompensation [Not Recovered/Not Resolved]
